FAERS Safety Report 9152222 (Version 1)
Quarter: 2013Q1

REPORT INFORMATION
  Report Type: Spontaneous
  Country: US (occurrence: US)
  Receive Date: 20130308
  Receipt Date: 20130308
  Transmission Date: 20140127
  Serious: No
  Sender: FDA-Public Use
  Company Number: US-009507513-1303USA004042

PATIENT
  Sex: Male

DRUGS (1)
  1. CLARITIN-D 12 HOUR [Suspect]
     Indication: COUGH
     Dosage: UNK, UNKNOWN
     Route: 048

REACTIONS (2)
  - Heart rate increased [Unknown]
  - Off label use [Unknown]
